FAERS Safety Report 5721535-5 (Version None)
Quarter: 2008Q2

REPORT INFORMATION
  Report Type: 
  Country: None (occurrence: None)
  Receive Date: 20080429
  Receipt Date: 20070312
  Transmission Date: 20081010
  Serious: Yes (Other)
  Sender: FDA-Public Use
  Company Number: US-ASTRAZENECA-2007UW04753

PATIENT
  Sex: Female

DRUGS (11)
  1. NEXIUM [Suspect]
     Route: 048
  2. CELEBREX [Concomitant]
  3. PAXIL [Concomitant]
  4. AMARYL [Concomitant]
  5. COZAAR [Concomitant]
  6. LIPITOR [Concomitant]
  7. TRICOR [Concomitant]
  8. ASPIRIN [Concomitant]
  9. TYLENOL [Concomitant]
  10. DARVOCET [Concomitant]
  11. BUMEX [Concomitant]

REACTIONS (1)
  - ANAPHYLACTIC REACTION [None]
